FAERS Safety Report 20794229 (Version 1)
Quarter: 2022Q2

REPORT INFORMATION
  Report Type: Spontaneous
  Country: CN (occurrence: CN)
  Receive Date: 20220506
  Receipt Date: 20220506
  Transmission Date: 20220721
  Serious: Yes (Death, Hospitalization, Other)
  Sender: FDA-Public Use
  Company Number: CN-STRIDES ARCOLAB LIMITED-2022SP004999

PATIENT
  Sex: Female

DRUGS (7)
  1. PREDNISOLONE [Suspect]
     Active Substance: PREDNISOLONE
     Indication: Cutaneous T-cell lymphoma
     Dosage: UNK, CYCLICAL (RECEIVED 6 CYCLES OF CHOP REGIMEN)
     Route: 065
     Dates: start: 202001, end: 2020
  2. CYCLOPHOSPHAMIDE [Suspect]
     Active Substance: CYCLOPHOSPHAMIDE
     Indication: Cutaneous T-cell lymphoma
     Dosage: UNK, CYCLICAL (RECEIVING 6 CYCLES OF CHOP REGIMEN)
     Route: 065
     Dates: start: 202001, end: 2020
  3. DOXORUBICIN [Suspect]
     Active Substance: DOXORUBICIN
     Indication: Cutaneous T-cell lymphoma
     Dosage: UNK, CYCLICAL (RECEIVED 6 CYCLES OF CHOP REGIMEN )
     Route: 065
     Dates: start: 202001, end: 2020
  4. VINCRISTINE [Suspect]
     Active Substance: VINCRISTINE
     Indication: Cutaneous T-cell lymphoma
     Dosage: UNK, CYCLICAL (RECEIVED 6 CYCLES OF CHOP REGIMEN)
     Route: 065
     Dates: start: 202001, end: 2020
  5. TUCIDINOSTAT [Suspect]
     Active Substance: TUCIDINOSTAT
     Indication: Cutaneous T-cell lymphoma
     Dosage: UNK, CYCLICAL (6 CYCLES OF CHOP REGIMEN)
     Route: 065
     Dates: start: 202001, end: 2020
  6. TUCIDINOSTAT [Suspect]
     Active Substance: TUCIDINOSTAT
     Dosage: UNK, MAINTENANCE REGIMEN
     Route: 065
     Dates: start: 202007
  7. TUCIDINOSTAT [Suspect]
     Active Substance: TUCIDINOSTAT
     Dosage: 20 MILLIGRAM EVERY 2 WEEKS (CYCLICAL)
     Route: 065

REACTIONS (2)
  - Pneumocystis jirovecii pneumonia [Fatal]
  - Therapy partial responder [Unknown]
